FAERS Safety Report 9935298 (Version 1)
Quarter: 2014Q1

REPORT INFORMATION
  Report Type: Spontaneous
  Country: BR (occurrence: BR)
  Receive Date: 20140228
  Receipt Date: 20140228
  Transmission Date: 20141002
  Serious: Yes (Hospitalization)
  Sender: FDA-Public Use
  Company Number: BR-ELI_LILLY_AND_COMPANY-BR201402007844

PATIENT
  Age: 13 Year
  Sex: Male

DRUGS (4)
  1. HUMALOG [Suspect]
     Indication: DIABETES MELLITUS
     Dosage: 8 IU, EACH MORNING
     Route: 058
     Dates: start: 201312
  2. HUMALOG [Suspect]
     Dosage: 12 IU, EACH MORNING
     Route: 058
     Dates: start: 201312
  3. HUMALOG [Suspect]
     Dosage: 12 IU, BID
     Route: 058
     Dates: start: 201312
  4. LANTUS [Concomitant]
     Indication: PRODUCT USED FOR UNKNOWN INDICATION
     Dosage: 40 IU, UNKNOWN
     Route: 065

REACTIONS (7)
  - Blood glucose abnormal [Recovered/Resolved]
  - Kidney infection [Recovered/Resolved]
  - Decreased appetite [Unknown]
  - Nausea [Unknown]
  - Hypophagia [Unknown]
  - Vomiting [Unknown]
  - Blood glucose increased [Unknown]
